FAERS Safety Report 6685014-3 (Version None)
Quarter: 2010Q2

REPORT INFORMATION
  Report Type: 
  Country: None (occurrence: None)
  Receive Date: 20100416
  Receipt Date: 20100409
  Transmission Date: 20101027
  Serious: Yes (Death)
  Sender: FDA-Public Use
  Company Number: US-JNJFOC-20100402793

PATIENT
  Age: 13 Month
  Sex: Male

DRUGS (4)
  1. CHILDREN'S TYLENOL [Suspect]
     Route: 048
  2. CHILDREN'S TYLENOL [Suspect]
     Indication: TEETHING
     Dosage: ^EVERY TWO TO THREE HOURS IN A TABLESPOON DOSE. THIS WENT ON FOR THREE WEEKS.^
     Route: 048
  3. EXTRA STRENGTH TYLENOL [Suspect]
  4. EXTRA STRENGTH TYLENOL [Suspect]
     Indication: ACCIDENTAL EXPOSURE

REACTIONS (7)
  - ACCIDENTAL DRUG INTAKE BY CHILD [None]
  - DRUG TOXICITY [None]
  - HEPATIC FAILURE [None]
  - INAPPROPRIATE SCHEDULE OF DRUG ADMINISTRATION [None]
  - INTENTIONAL DRUG MISUSE [None]
  - OVERDOSE [None]
  - VOMITING [None]
